FAERS Safety Report 5285277-5 (Version None)
Quarter: 2007Q2

REPORT INFORMATION
  Report Type: 
  Country: None (occurrence: None)
  Receive Date: 20070403
  Receipt Date: 20070323
  Transmission Date: 20071010
  Serious: Yes (Other)
  Sender: FDA-Public Use
  Company Number: DE-PFIZER INC-2007023734

PATIENT
  Sex: Female

DRUGS (1)
  1. CABASERIL [Suspect]
     Indication: RESTLESS LEGS SYNDROME
     Dosage: DAILY DOSE:2MG
     Route: 048

REACTIONS (3)
  - ARRHYTHMIA [None]
  - CARDIAC VALVE DISEASE [None]
  - MYOCARDITIS [None]
